FAERS Safety Report 16178211 (Version 1)
Quarter: 2019Q2

REPORT INFORMATION
  Report Type: Spontaneous
  Country: RO (occurrence: RO)
  Receive Date: 20190410
  Receipt Date: 20190410
  Transmission Date: 20190711
  Serious: Yes (Other)
  Sender: FDA-Public Use
  Company Number: RO-ASTRAZENECA-2019SE24451

PATIENT
  Age: 62 Year
  Sex: Female

DRUGS (6)
  1. FORXIGA [Suspect]
     Active Substance: DAPAGLIFLOZIN
     Indication: TYPE 2 DIABETES MELLITUS
     Route: 048
     Dates: start: 20170411, end: 20190219
  2. DIAPREL MR [Concomitant]
     Active Substance: GLICLAZIDE
     Dosage: 1/2 TABLETS/DAY
  3. SIOFOR [Concomitant]
     Active Substance: METFORMIN HYDROCHLORIDE
  4. TOLURA [Concomitant]
  5. CONCOR [Concomitant]
     Active Substance: BISOPROLOL FUMARATE
  6. TERTENSIF [Concomitant]
     Active Substance: INDAPAMIDE

REACTIONS (2)
  - Renal neoplasm [Unknown]
  - Hepatic steatosis [Unknown]
